FAERS Safety Report 9399416 (Version 3)
Quarter: 2013Q4

REPORT INFORMATION
  Report Type: Spontaneous
  Country: US (occurrence: US)
  Receive Date: 20130715
  Receipt Date: 20131003
  Transmission Date: 20140711
  Serious: No
  Sender: FDA-Public Use
  Company Number: US-PFIZER INC-2013203398

PATIENT
  Sex: Male
  Weight: 81.63 kg

DRUGS (10)
  1. SUTENT [Suspect]
     Indication: RENAL CANCER RECURRENT
     Dosage: 50 MG, DAILY CYCLIC (4 WEEKS WITH A 2 WEEK BREAK)
     Dates: start: 20130701
  2. SUTENT [Suspect]
     Dosage: 37.5 MG, CYCLIC
     Dates: start: 20130716
  3. VITAMIN D [Concomitant]
     Dosage: UNK
  4. SIMVASTATIN [Concomitant]
     Dosage: UNK
  5. FINASTERIDE [Concomitant]
     Dosage: UNK
  6. ACTOS [Concomitant]
     Dosage: UNK
  7. GLIPIZIDE [Concomitant]
     Dosage: UNK
  8. OMEGA 3 [Concomitant]
     Dosage: UNK
  9. CALCIUM [Concomitant]
     Dosage: UNK
  10. CINNAMON [Concomitant]
     Indication: SUPPLEMENTATION THERAPY
     Dosage: UNK

REACTIONS (5)
  - Fatigue [Unknown]
  - Somnolence [Unknown]
  - Blood glucose decreased [Unknown]
  - Skin discolouration [Unknown]
  - Skin haemorrhage [Unknown]
